FAERS Safety Report 13853477 (Version 1)
Quarter: 2017Q3

REPORT INFORMATION
  Report Type: Report from Study
  Country: MY (occurrence: MY)
  Receive Date: 20170810
  Receipt Date: 20170810
  Transmission Date: 20171127
  Serious: Yes (Death)
  Sender: FDA-Public Use
  Company Number: MY-ROCHE-1974911

PATIENT
  Age: 67 Year
  Sex: Male

DRUGS (1)
  1. ALTEPLASE. [Suspect]
     Active Substance: ALTEPLASE
     Indication: ISCHAEMIC STROKE
     Route: 042

REACTIONS (3)
  - Hydrocephalus [Fatal]
  - Cerebral haematoma [Fatal]
  - Brain midline shift [Fatal]
